FAERS Safety Report 6169738-2 (Version None)
Quarter: 2009Q2

REPORT INFORMATION
  Report Type: 
  Country: None (occurrence: None)
  Receive Date: 20090428
  Receipt Date: 20090420
  Transmission Date: 20091009
  Serious: Yes (Life-Threatening)
  Sender: FDA-Public Use
  Company Number: OM-ROCHE-628346

PATIENT
  Age: 9 Year
  Sex: Female

DRUGS (6)
  1. MYCOPHENOLATE MOFETIL [Suspect]
     Indication: SYSTEMIC LUPUS ERYTHEMATOSUS
     Route: 065
     Dates: start: 20020101, end: 20070601
  2. PREDNISONE TAB [Concomitant]
     Indication: SYSTEMIC LUPUS ERYTHEMATOSUS
  3. PREDNISONE TAB [Concomitant]
     Dosage: DOSAGE GRADUALLY WEANED BY 50%
  4. IMMUNE GLOBULIN IV NOS [Concomitant]
     Route: 041
     Dates: start: 20060101
  5. IMMUNE GLOBULIN IV NOS [Concomitant]
     Route: 041
  6. CYCLOSPORINE [Concomitant]
     Indication: SYSTEMIC LUPUS ERYTHEMATOSUS
     Dates: start: 20080101

REACTIONS (3)
  - ANAEMIA HAEMOLYTIC AUTOIMMUNE [None]
  - HAEMOLYSIS [None]
  - SHOCK [None]
